FAERS Safety Report 25200952 (Version 2)
Quarter: 2025Q3

REPORT INFORMATION
  Report Type: Report from Study
  Country: US (occurrence: US)
  Receive Date: 20250415
  Receipt Date: 20250930
  Transmission Date: 20251021
  Serious: Yes (Other)
  Sender: ABBVIE
  Company Number: US-ABBVIE-6230101

PATIENT
  Age: 76 Year
  Sex: Male

DRUGS (1)
  1. VENCLEXTA [Suspect]
     Active Substance: VENETOCLAX
     Indication: Plasma cell myeloma
     Route: 048
     Dates: start: 202501, end: 20250908

REACTIONS (8)
  - Salivary gland calculus [Unknown]
  - Surgery [Unknown]
  - Vitamin B12 decreased [Unknown]
  - Cerebrovascular accident [Unknown]
  - Stress [Unknown]
  - Off label use [Unknown]
  - Fatigue [Unknown]
  - General physical health deterioration [Unknown]

NARRATIVE: CASE EVENT DATE: 20250101
